FAERS Safety Report 12861869 (Version 1)
Quarter: 2016Q4

REPORT INFORMATION
  Report Type: Spontaneous
  Country: SE (occurrence: SE)
  Receive Date: 20161019
  Receipt Date: 20161019
  Transmission Date: 20170207
  Serious: Yes (Other)
  Sender: FDA-Public Use
  Company Number: SE-AUROBINDO-AUR-APL-2016-13194

PATIENT
  Age: 54 Year
  Sex: Female

DRUGS (1)
  1. PAROXETINE FILM-COATED TABLET [Suspect]
     Active Substance: PAROXETINE
     Indication: PRODUCT USED FOR UNKNOWN INDICATION
     Dosage: 20 MG, UNK
     Route: 048

REACTIONS (4)
  - Tremor [Unknown]
  - Chest discomfort [Unknown]
  - Product substitution issue [Unknown]
  - Nausea [Unknown]
